FAERS Safety Report 4280149-7 (Version None)
Quarter: 2004Q1

REPORT INFORMATION
  Report Type: 
  Country: None (occurrence: None)
  Receive Date: 20040126
  Receipt Date: 20040114
  Transmission Date: 20041129
  Serious: Yes (Life-Threatening, Other)
  Sender: FDA-Public Use
  Company Number: 2004002855

PATIENT
  Age: 79 Year
  Sex: Female

DRUGS (6)
  1. UNASYN [Suspect]
     Indication: INFECTION PROPHYLAXIS
     Dosage: 3 GRAM, INTRAVENOUS
     Route: 042
     Dates: start: 20040109
  2. ALL OTHER THEAPEUTIC PRODUCTS [Suspect]
     Indication: ILL-DEFINED DISORDER
  3. PENTAZOCINE LACTATE [Concomitant]
  4. TETRACAINE HYDROCHLORIDE (TETRACAINE HYDROCHLORIDE) [Concomitant]
  5. POVIDONE IODINE [Concomitant]
  6. LIDOCAINE HYDROCHLORIDE [Concomitant]

REACTIONS (3)
  - FEELING ABNORMAL [None]
  - LOSS OF CONSCIOUSNESS [None]
  - SINUS ARREST [None]
